FAERS Safety Report 20772106 (Version 3)
Quarter: 2022Q2

REPORT INFORMATION
  Report Type: Report from Study
  Country: GB (occurrence: GB)
  Receive Date: 20220502
  Receipt Date: 20220623
  Transmission Date: 20220720
  Serious: Yes (Death, Other)
  Sender: FDA-Public Use
  Company Number: GB-BAYER-2022A061780

PATIENT
  Age: 56 Year
  Sex: Female

DRUGS (1)
  1. VENTAVIS [Suspect]
     Active Substance: ILOPROST
     Indication: Pulmonary arterial hypertension
     Dosage: UNK
     Route: 055
     Dates: start: 20211208, end: 20220419

REACTIONS (1)
  - Death [Fatal]
